FAERS Safety Report 6072360-X (Version None)
Quarter: 2009Q1

REPORT INFORMATION
  Report Type: 
  Country: None (occurrence: None)
  Receive Date: 20090210
  Receipt Date: 20090206
  Transmission Date: 20090719
  Serious: Yes (Other)
  Sender: FDA-Public Use
  Company Number: PHHY2009GB03215

PATIENT
  Sex: Male

DRUGS (5)
  1. CLOZARIL [Suspect]
     Indication: SCHIZOPHRENIA
     Dosage: 275 MG DAILY
     Route: 048
     Dates: start: 20070426
  2. RAMIPRIL [Concomitant]
     Indication: HYPERTENSION
     Dosage: 10 MG DAILY
     Route: 048
  3. OMEPRAZOLE [Concomitant]
     Indication: GASTRIC ULCER
     Dosage: 20 MG DAILY
     Route: 048
  4. SALBUTAMOL [Concomitant]
     Indication: ASTHMA
     Dosage: UNK
  5. ALFUZOSIN HCL [Concomitant]
     Indication: PROSTATE INDURATION
     Dosage: 10 MG DAILY
     Route: 048

REACTIONS (10)
  - BLOOD UREA INCREASED [None]
  - HAEMOGLOBIN DECREASED [None]
  - INFECTION [None]
  - MALLORY-WEISS SYNDROME [None]
  - MEDICAL OBSERVATION ABNORMAL [None]
  - MENTAL IMPAIRMENT [None]
  - NEUTROPHIL COUNT INCREASED [None]
  - PYREXIA [None]
  - URINARY RETENTION [None]
  - WHITE BLOOD CELL COUNT INCREASED [None]
